FAERS Safety Report 21118411 (Version 1)
Quarter: 2022Q3

REPORT INFORMATION
  Report Type: Spontaneous
  Country: US (occurrence: None)
  Receive Date: 20220721
  Receipt Date: 20220721
  Transmission Date: 20221027
  Serious: No
  Sender: FDA-Public Use
  Company Number: None

PATIENT
  Age: 52 Year
  Sex: Male

DRUGS (1)
  1. METRONIDAZOLE [Suspect]
     Active Substance: METRONIDAZOLE
     Dosage: 250 MG TID PO?
     Route: 048
     Dates: start: 20220214, end: 20220225

REACTIONS (2)
  - Diarrhoea haemorrhagic [None]
  - Rectal haemorrhage [None]

NARRATIVE: CASE EVENT DATE: 20220225
